FAERS Safety Report 7874859-X (Version None)
Quarter: 2011Q4

REPORT INFORMATION
  Report Type: 
  Country: None (occurrence: None)
  Receive Date: 20111031
  Receipt Date: 20111026
  Transmission Date: 20120403
  Serious: Yes (Death)
  Sender: FDA-Public Use
  Company Number: US-JNJFOC-20111011832

PATIENT
  Sex: Male

DRUGS (1)
  1. PREZISTA [Suspect]
     Indication: HIV INFECTION
     Route: 048
     Dates: start: 20110901, end: 20110101

REACTIONS (1)
  - COMPLETED SUICIDE [None]
